FAERS Safety Report 5671215-X (Version None)
Quarter: 2008Q1

REPORT INFORMATION
  Report Type: 
  Country: None (occurrence: None)
  Receive Date: 20080318
  Receipt Date: 20080213
  Transmission Date: 20080703
  Serious: Yes (Other)
  Sender: FDA-Public Use
  Company Number: US-WYE-H02602908

PATIENT
  Sex: Male
  Weight: 63.56 kg

DRUGS (3)
  1. BENEFIX [Suspect]
     Indication: FACTOR VIII DEFICIENCY
     Route: 042
     Dates: start: 20080208, end: 20080208
  2. MOROCTOCOG ALFA [Concomitant]
     Indication: FACTOR VIII DEFICIENCY
     Dosage: DOSE NOT PROVIDED
     Route: 042
     Dates: start: 20070208
  3. MOROCTOCOG ALFA [Concomitant]
     Dosage: DATES, DOSE AND FREQUENCE WAS NOT PROVIDED
     Route: 042

REACTIONS (2)
  - HAEMORRHAGE [None]
  - WRONG DRUG ADMINISTERED [None]
